FAERS Safety Report 12548464 (Version 1)
Quarter: 2016Q3

REPORT INFORMATION
  Report Type: Spontaneous
  Country: US (occurrence: US)
  Receive Date: 20160712
  Receipt Date: 20160712
  Transmission Date: 20161109
  Serious: Yes (Hospitalization)
  Sender: FDA-Public Use
  Company Number: US-AUROBINDO-AUR-APL-2016-08798

PATIENT
  Sex: Female

DRUGS (1)
  1. VORICONAZOLE. [Suspect]
     Active Substance: VORICONAZOLE
     Indication: MENINGITIS
     Route: 065

REACTIONS (3)
  - Actinic keratosis [Unknown]
  - Photosensitivity reaction [Unknown]
  - Squamous cell carcinoma [Unknown]
